FAERS Safety Report 24698020 (Version 2)
Quarter: 2024Q4

REPORT INFORMATION
  Report Type: Spontaneous
  Country: JP (occurrence: JP)
  Receive Date: 20241204
  Receipt Date: 20241217
  Transmission Date: 20250115
  Serious: Yes (Hospitalization, Other)
  Sender: Phathom Pharmaceuticals
  Company Number: JP-PHATHOM PHARMACEUTICALS INC.-2024PHT01374

PATIENT
  Age: 8 Decade
  Sex: Male

DRUGS (6)
  1. VONOPRAZAN FUMARATE [Suspect]
     Active Substance: VONOPRAZAN FUMARATE
     Indication: Gastric ulcer
     Dosage: 20 MG, 1X/DAY
     Route: 048
     Dates: start: 20240905
  2. ASPIRIN [Concomitant]
     Active Substance: ASPIRIN
  3. TICLOPIDINE HYDROCHLORIDE [Concomitant]
     Active Substance: TICLOPIDINE HYDROCHLORIDE
  4. PANTETHINE [Concomitant]
     Active Substance: PANTETHINE
  5. MAGNESIUM OXIDE [Concomitant]
     Active Substance: MAGNESIUM OXIDE
  6. ICOSAPENT [Concomitant]
     Active Substance: ICOSAPENT

REACTIONS (1)
  - Gastric cancer [Unknown]
